FAERS Safety Report 6558396-0 (Version None)
Quarter: 2010Q1

REPORT INFORMATION
  Report Type: 
  Country: None (occurrence: None)
  Receive Date: 20100129
  Receipt Date: 20100121
  Transmission Date: 20100710
  Serious: Yes (Other)
  Sender: FDA-Public Use
  Company Number: IT-GENENTECH-296434

PATIENT
  Sex: Female

DRUGS (5)
  1. SOMATROPIN [Suspect]
     Indication: GROWTH HORMONE DEFICIENCY
     Dosage: 0.2 MG, 7/WEEK
     Route: 058
     Dates: start: 20060101, end: 20091222
  2. ESTROPROGESTIN PREPARATIONS [Concomitant]
     Indication: DRUG USE FOR UNKNOWN INDICATION
     Dosage: 1 A?G, UNK
     Route: 048
     Dates: start: 19990129
  3. LEVOTHYROXINE SODIUM [Concomitant]
     Indication: DRUG USE FOR UNKNOWN INDICATION
     Dosage: 175 MG, UNK
     Route: 048
     Dates: start: 20080129, end: 20100113
  4. LUTENYL [Concomitant]
     Indication: DRUG USE FOR UNKNOWN INDICATION
     Dosage: 10 MG, UNK
     Route: 048
  5. ETHINYL ESTRADIOL [Concomitant]
     Indication: DRUG USE FOR UNKNOWN INDICATION
     Dosage: 50 MG, UNK
     Route: 048

REACTIONS (1)
  - CHOROID MELANOMA [None]
